FAERS Safety Report 7412965-4 (Version None)
Quarter: 2011Q2

REPORT INFORMATION
  Report Type: 
  Country: None (occurrence: None)
  Receive Date: 20110408
  Receipt Date: 20110408
  Transmission Date: 20111010
  Serious: No
  Sender: FDA-Public Use
  Company Number: None

PATIENT
  Age: 51 Year
  Sex: Female
  Weight: 133.8111 kg

DRUGS (1)
  1. DEXAMETHASONE SODIUM PHOSPHATE MULTIPLE VIALS, SINGLE DOSE LUITPOLD PH [Suspect]
     Indication: TENDONITIS
     Dosage: SINGLE USE 3X WEEK
     Dates: start: 20101015, end: 20101115

REACTIONS (4)
  - GAIT DISTURBANCE [None]
  - RASH [None]
  - OEDEMA PERIPHERAL [None]
  - TENDON DISORDER [None]
